FAERS Safety Report 20827837 (Version 1)
Quarter: 2022Q2

REPORT INFORMATION
  Report Type: Spontaneous
  Country: JP (occurrence: JP)
  Receive Date: 20220513
  Receipt Date: 20220513
  Transmission Date: 20220721
  Serious: Yes (Other)
  Sender: FDA-Public Use
  Company Number: JP-ALLERGAN-2215275US

PATIENT
  Sex: Female

DRUGS (9)
  1. URSODIOL [Suspect]
     Active Substance: URSODIOL
     Indication: Product used for unknown indication
     Dosage: 200 MG, TID
     Route: 048
  2. VALSARTAN [Concomitant]
     Active Substance: VALSARTAN
  3. FUROSEMIDE [Concomitant]
     Active Substance: FUROSEMIDE
  4. BEZAFIBRATE [Concomitant]
     Active Substance: BEZAFIBRATE
  5. ALLOPURINOL [Concomitant]
     Active Substance: ALLOPURINOL
  6. AMARYL [Concomitant]
     Active Substance: GLIMEPIRIDE
  7. METFORMIN HYDROCHLORIDE\VILDAGLIPTIN [Concomitant]
     Active Substance: METFORMIN HYDROCHLORIDE\VILDAGLIPTIN
  8. SODIUM GUALENATE [Concomitant]
     Active Substance: SODIUM GUALENATE
  9. VONOPRAZAN FUMARATE [Concomitant]
     Active Substance: VONOPRAZAN FUMARATE

REACTIONS (1)
  - Renal impairment [Not Recovered/Not Resolved]

NARRATIVE: CASE EVENT DATE: 20150901
